FAERS Safety Report 7717330-8 (Version None)
Quarter: 2011Q3

REPORT INFORMATION
  Report Type: 
  Country: None (occurrence: None)
  Receive Date: 20110830
  Receipt Date: 20110818
  Transmission Date: 20111222
  Serious: No
  Sender: FDA-Public Use
  Company Number: US-JNJFOC-20110809531

PATIENT
  Sex: Male
  Weight: 117.94 kg

DRUGS (7)
  1. DURAGESIC-100 [Suspect]
     Indication: PAIN
     Route: 062
  2. DURAGESIC-100 [Suspect]
     Route: 062
     Dates: start: 20100101
  3. OPANA [Concomitant]
     Indication: PAIN
     Route: 048
     Dates: start: 20110201
  4. ZEGERID [Concomitant]
     Indication: GASTROOESOPHAGEAL REFLUX DISEASE
     Route: 048
     Dates: start: 20100101
  5. OPANA ER [Concomitant]
     Indication: PAIN
     Route: 048
     Dates: start: 20110201
  6. LYRICA [Concomitant]
     Indication: NEURALGIA
     Route: 048
     Dates: start: 20060101
  7. DURAGESIC-100 [Suspect]
     Indication: PRODUCT USED FOR UNKNOWN INDICATION
     Route: 062
     Dates: start: 20080101

REACTIONS (11)
  - WITHDRAWAL SYNDROME [None]
  - SKIN EXFOLIATION [None]
  - SOMNOLENCE [None]
  - SKIN INJURY [None]
  - INAPPROPRIATE SCHEDULE OF DRUG ADMINISTRATION [None]
  - HYPERSENSITIVITY [None]
  - THERAPEUTIC RESPONSE DECREASED [None]
  - APPLICATION SITE REACTION [None]
  - DRY SKIN [None]
  - DRUG PRESCRIBING ERROR [None]
  - DRUG INEFFECTIVE [None]
